FAERS Safety Report 19610480 (Version 2)
Quarter: 2022Q3

REPORT INFORMATION
  Report Type: Spontaneous
  Country: GB (occurrence: GB)
  Receive Date: 20210726
  Receipt Date: 20220805
  Transmission Date: 20221026
  Serious: Yes (Other)
  Sender: FDA-Public Use
  Company Number: GB-ALLERGAN-2126513US

PATIENT
  Sex: Female
  Weight: 86 kg

DRUGS (1)
  1. CITALOPRAM HYDROBROMIDE [Suspect]
     Active Substance: CITALOPRAM HYDROBROMIDE
     Indication: Anxiety
     Dosage: 40 MG
     Route: 048

REACTIONS (4)
  - Feeling abnormal [Unknown]
  - Thinking abnormal [Unknown]
  - Amnesia [Unknown]
  - Off label use [Unknown]
